FAERS Safety Report 12186595 (Version 1)
Quarter: 2016Q1

REPORT INFORMATION
  Report Type: Spontaneous
  Country: US (occurrence: US)
  Receive Date: 20160317
  Receipt Date: 20160317
  Transmission Date: 20160526
  Serious: Yes (Other)
  Sender: FDA-Public Use
  Company Number: US-BEH-2016060027

PATIENT
  Sex: Female
  Weight: 76 kg

DRUGS (16)
  1. DULOXETINE. [Concomitant]
     Active Substance: DULOXETINE
  2. BUPROPION. [Concomitant]
     Active Substance: BUPROPION
  3. EPIPEN [Concomitant]
     Active Substance: EPINEPHRINE
  4. METOPROLOL. [Concomitant]
     Active Substance: METOPROLOL
  5. WARFARIN [Concomitant]
     Active Substance: WARFARIN
  6. GABAPENTIN. [Concomitant]
     Active Substance: GABAPENTIN
  7. LIDOCAINE/PRIOLOCAINE [Concomitant]
  8. NABUMETONE. [Concomitant]
     Active Substance: NABUMETONE
  9. HIZENTRA [Suspect]
     Active Substance: HUMAN IMMUNOGLOBULIN G
     Route: 058
  10. EPITOL [Concomitant]
     Active Substance: CARBAMAZEPINE
  11. HIZENTRA [Suspect]
     Active Substance: HUMAN IMMUNOGLOBULIN G
     Indication: IMMUNODEFICIENCY COMMON VARIABLE
     Route: 058
  12. LIPITOR [Concomitant]
     Active Substance: ATORVASTATIN CALCIUM
  13. DIPHENHYDRAMINE. [Concomitant]
     Active Substance: DIPHENHYDRAMINE
  14. TRIAMETRENE-HCTZ [Concomitant]
  15. AUGMENTIN [Concomitant]
     Active Substance: AMOXICILLIN\CLAVULANATE POTASSIUM
  16. CYTRA-K [Concomitant]
     Active Substance: CITRIC ACID MONOHYDRATE\POTASSIUM CITRATE

REACTIONS (1)
  - Thrombosis [Unknown]
